FAERS Safety Report 12657811 (Version 3)
Quarter: 2017Q1

REPORT INFORMATION
  Report Type: Report from Study
  Country: US (occurrence: US)
  Receive Date: 20160816
  Receipt Date: 20170317
  Transmission Date: 20170428
  Serious: Yes (Death, Hospitalization)
  Sender: FDA-Public Use
  Company Number: US-ACTELION-A-NJ2016-140472

PATIENT
  Age: 69 Year
  Sex: Female
  Weight: 63.95 kg

DRUGS (9)
  1. VELETRI [Suspect]
     Active Substance: EPOPROSTENOL
     Dosage: 9 NG/KG, PER MIN
     Route: 042
     Dates: start: 20160725
  2. VELETRI [Suspect]
     Active Substance: EPOPROSTENOL
     Dosage: 10 NG/KG, PER MIN
     Route: 042
     Dates: start: 20160811
  3. LETAIRIS [Concomitant]
     Active Substance: AMBRISENTAN
  4. REVATIO [Concomitant]
     Active Substance: SILDENAFIL CITRATE
  5. VELETRI [Suspect]
     Active Substance: EPOPROSTENOL
     Indication: PULMONARY HYPERTENSION
     Dosage: 11 NG/KG, PER MIN
     Route: 042
     Dates: start: 20160725
  6. VELETRI [Suspect]
     Active Substance: EPOPROSTENOL
     Dosage: 8 NG/KG, PER MIN
     Route: 042
  7. VELETRI [Suspect]
     Active Substance: EPOPROSTENOL
     Dosage: UNK
     Route: 042
     Dates: start: 20160725
  8. VELETRI [Suspect]
     Active Substance: EPOPROSTENOL
     Dosage: 22 NG/KG, PER MIN
     Route: 042
  9. VELETRI [Suspect]
     Active Substance: EPOPROSTENOL
     Dosage: 21 NG/KG, PER MIN
     Route: 042

REACTIONS (22)
  - Bronchitis [Unknown]
  - Death [Fatal]
  - Decreased appetite [Unknown]
  - Diarrhoea [Unknown]
  - Nasal injury [Unknown]
  - Musculoskeletal pain [Unknown]
  - Headache [Unknown]
  - Pain in extremity [Unknown]
  - Retching [Unknown]
  - Nausea [Unknown]
  - Fatigue [Not Recovered/Not Resolved]
  - Fall [Unknown]
  - Arthralgia [Unknown]
  - Eye irritation [Unknown]
  - Fluid retention [Recovered/Resolved]
  - Flushing [Unknown]
  - Back pain [Unknown]
  - Cough [Unknown]
  - Vomiting [Unknown]
  - Dizziness [Unknown]
  - Rhinorrhoea [Unknown]
  - Epistaxis [Unknown]

NARRATIVE: CASE EVENT DATE: 20160812
